FAERS Safety Report 23974974 (Version 2)
Quarter: 2025Q3

REPORT INFORMATION
  Report Type: Spontaneous
  Country: US (occurrence: US)
  Receive Date: 20240614
  Receipt Date: 20250929
  Transmission Date: 20251021
  Serious: Yes (Disabling, Other)
  Sender: AMGEN
  Company Number: US-AMGEN-USASP2024113711

PATIENT
  Age: 49 Year
  Sex: Female

DRUGS (34)
  1. TEPEZZA [Suspect]
     Active Substance: TEPROTUMUMAB-TRBW
     Indication: Graves^ disease
     Route: 042
     Dates: start: 20200410
  2. TEPEZZA [Suspect]
     Active Substance: TEPROTUMUMAB-TRBW
     Indication: Endocrine ophthalmopathy
     Route: 042
     Dates: start: 20200503, end: 202009
  3. SINGULAIR [Concomitant]
     Active Substance: MONTELUKAST SODIUM
     Dosage: 10 MILLIGRAM, QD
     Route: 048
     Dates: start: 20190915, end: 20201005
  4. SINGULAIR [Concomitant]
     Active Substance: MONTELUKAST SODIUM
     Dosage: 10 MILLIGRAM, QD (EVERY EVENING)
     Route: 048
     Dates: start: 20250429
  5. TAPAZOLE [Concomitant]
     Active Substance: METHIMAZOLE
     Route: 065
     Dates: start: 20200313, end: 20201008
  6. TAPAZOLE [Concomitant]
     Active Substance: METHIMAZOLE
     Dosage: 2.5 MILLIGRAM, QD
     Route: 048
     Dates: start: 20250619
  7. VALTREX [Concomitant]
     Active Substance: VALACYCLOVIR HYDROCHLORIDE
     Dosage: 500 MILLIGRAM, BID
     Route: 048
     Dates: start: 20250429
  8. TRANSDERM SCOP [Concomitant]
     Active Substance: SCOPOLAMINE
     Indication: Nausea
     Route: 061
     Dates: start: 20250806
  9. PROMETRIUM [Concomitant]
     Active Substance: PROGESTERONE
     Dosage: 100 MILLIGRAM, QD (EVERY NIGHT)
     Route: 048
     Dates: start: 20250107
  10. PERFLUOROHEXYLOCTANE [Concomitant]
     Active Substance: PERFLUOROHEXYLOCTANE
     Dosage: 1 DROP, QID
     Route: 047
     Dates: start: 20250501
  11. VITAMINS [Concomitant]
     Active Substance: VITAMINS
     Dosage: UNK UNK, QD
     Route: 048
  12. MOBIC [Concomitant]
     Active Substance: MELOXICAM
     Dosage: 7.5 MILLIGRAM, QD
     Route: 048
     Dates: start: 20250616
  13. ADVIL [Concomitant]
     Active Substance: IBUPROFEN
     Route: 065
     Dates: start: 20230207
  14. MOTRIN [Concomitant]
     Active Substance: IBUPROFEN
     Route: 065
     Dates: start: 20230207
  15. VIVELLE-DOT [Concomitant]
     Active Substance: ESTRADIOL
     Dosage: UNK UNK, 2 TIMES/WK (PLACE 1 PATCH ON THE SKIN)
     Route: 061
     Dates: start: 20250110
  16. ESTRACE [Concomitant]
     Active Substance: ESTRADIOL
     Dosage: 0.25 GRAM, 3 TIMES/WK
     Route: 067
     Dates: start: 20250107
  17. BUSPAR [Concomitant]
     Active Substance: BUSPIRONE HYDROCHLORIDE
     Indication: Anxiety
     Dosage: UNK UNK, BID
     Route: 048
     Dates: start: 20250429
  18. SHINGRIX [Concomitant]
     Active Substance: RECOMBINANT VARICELLA ZOSTER VIRUS (VZV) GLYCOPROTEIN E
     Route: 065
     Dates: start: 20221107
  19. ADACEL TDAP [Concomitant]
     Active Substance: TETANUS TOXOID, REDUCED DIPHTHERIA TOXOID AND ACELLULAR PERTUSSIS VACCINE ADSORBED, TDAP
     Dates: start: 20221212
  20. MODERNA COVID-19 VACCINE [Concomitant]
     Active Substance: ELASOMERAN
     Route: 030
     Dates: start: 20210317
  21. MODERNA COVID-19 VACCINE [Concomitant]
     Active Substance: ELASOMERAN
     Route: 030
     Dates: start: 20210414
  22. MODERNA COVID-19 VACCINE [Concomitant]
     Active Substance: ELASOMERAN
     Route: 065
     Dates: start: 20211207
  23. MODERNA COVID-19 VACCINE [Concomitant]
     Active Substance: ELASOMERAN
     Route: 065
     Dates: start: 20220530
  24. MODERNA COVID-19 VACCINE [Concomitant]
     Active Substance: ELASOMERAN
     Route: 065
     Dates: start: 20230204
  25. CAPVAXIVE [Concomitant]
     Active Substance: CORYNEBACTERIUM DIPHTHERIAE CRM197 PROTEIN\STREPTOCOCCUS PNEUMONIAE TYPE 10A CAPSULAR POLYSACCHARIDE
     Route: 030
     Dates: start: 20250429
  26. INFLUENZA VIRUS VACCINE [Concomitant]
     Active Substance: INFLUENZA VIRUS VACCINE
     Route: 030
     Dates: start: 20201022
  27. INFLUENZA VIRUS VACCINE [Concomitant]
     Active Substance: INFLUENZA VIRUS VACCINE
     Route: 030
     Dates: start: 20211006
  28. INFLUENZA VIRUS VACCINE [Concomitant]
     Active Substance: INFLUENZA VIRUS VACCINE
     Route: 065
     Dates: start: 20240917
  29. INFLUENZA VIRUS VACCINE [Concomitant]
     Active Substance: INFLUENZA VIRUS VACCINE
     Dates: start: 20181001
  30. INFLUENZA VIRUS VACCINE [Concomitant]
     Active Substance: INFLUENZA VIRUS VACCINE
     Route: 030
     Dates: start: 20101001
  31. INFLUENZA VIRUS VACCINE [Concomitant]
     Active Substance: INFLUENZA VIRUS VACCINE
     Dates: start: 20191001
  32. FLUARIX QUADRIVALENT [Concomitant]
     Active Substance: INFLUENZA VIRUS VACCINE
     Route: 030
     Dates: start: 20221103
  33. FLUARIX QUADRIVALENT [Concomitant]
     Active Substance: INFLUENZA VIRUS VACCINE
     Route: 030
     Dates: start: 20231107
  34. Libido [Concomitant]
     Route: 065

REACTIONS (20)
  - Deafness permanent [Not Recovered/Not Resolved]
  - Physical disability [Not Recovered/Not Resolved]
  - Endocrine ophthalmopathy [Unknown]
  - Graves^ disease [Unknown]
  - Pain [Unknown]
  - Emotional distress [Unknown]
  - Anxiety [Unknown]
  - Impaired quality of life [Unknown]
  - Tinnitus [Not Recovered/Not Resolved]
  - Product use complaint [Unknown]
  - Nasal congestion [Unknown]
  - Upper-airway cough syndrome [Unknown]
  - Dysplastic naevus [Recovered/Resolved]
  - Fatigue [Recovered/Resolved]
  - Epicondylitis [Recovered/Resolved]
  - Myalgia [Recovered/Resolved]
  - Headache [Recovered/Resolved]
  - Antinuclear antibody positive [Unknown]
  - Dysmenorrhoea [Recovered/Resolved]
  - Genital herpes [Unknown]

NARRATIVE: CASE EVENT DATE: 20200101
